FAERS Safety Report 5364287-3 (Version None)
Quarter: 2007Q2

REPORT INFORMATION
  Report Type: 
  Country: None (occurrence: None)
  Receive Date: 20070618
  Receipt Date: 20070605
  Transmission Date: 20071010
  Serious: Yes (Death)
  Sender: FDA-Public Use
  Company Number: 16769

PATIENT
  Age: 64 Year
  Sex: Male

DRUGS (9)
  1. METHOTREXATE [Suspect]
     Indication: MANTLE CELL LYMPHOMA
  2. VINCRISTINE [Suspect]
     Dosage: MANTLE CELL LYMPHOMA
  3. DOXORUBICIN HCL [Concomitant]
     Indication: MANTLE CELL LYMPHOMA
  4. CYTARABINE [Suspect]
     Indication: MANTLE CELL LYMPHOMA
  5. DEXAMETHASONE 0.5MG TAB [Suspect]
     Indication: MANTLE CELL LYMPHOMA
  6. CYCLOPHOSPHAMIDE [Suspect]
     Indication: MANTLE CELL LYMPHOMA
  7. IMATINIB MESYLATE [Suspect]
     Indication: MANTLE CELL LYMPHOMA
  8. FLUDARABINE PHOSPHATE [Concomitant]
  9. RITUXIMAB [Concomitant]

REACTIONS (2)
  - DISEASE PROGRESSION [None]
  - DRUG TOXICITY [None]
